FAERS Safety Report 9262017 (Version 1)
Quarter: 2013Q2

REPORT INFORMATION
  Report Type: Spontaneous
  Country: US (occurrence: US)
  Receive Date: 20130429
  Receipt Date: 20130429
  Transmission Date: 20140414
  Serious: No
  Sender: FDA-Public Use
  Company Number: US-BAYER-2013-052647

PATIENT
  Sex: Female

DRUGS (1)
  1. FINACEA [Suspect]

REACTIONS (4)
  - Pruritus [None]
  - Pain [None]
  - Paraesthesia [None]
  - Muscle tightness [None]
